FAERS Safety Report 6589025-8 (Version None)
Quarter: 2010Q1

REPORT INFORMATION
  Report Type: 
  Country: None (occurrence: None)
  Receive Date: 20100212
  Receipt Date: 20100125
  Transmission Date: 20100710
  Serious: Yes (Hospitalization, Disabling)
  Sender: FDA-Public Use
  Company Number: RO-001419

PATIENT
  Sex: Male
  Weight: 62 kg

DRUGS (10)
  1. DEGARELIX (DEGARELIX) [Suspect]
     Indication: PROSTATE CANCER
     Dosage: (240 MG SUBCUTANEOUS)
     Route: 058
     Dates: start: 20100118, end: 20100118
  2. DIAPREL [Concomitant]
  3. PYRAZINAMIDE [Concomitant]
  4. ETAMBUTOL /00022301/ [Concomitant]
  5. SINERDOL [Concomitant]
  6. TAMSULOSIN HCL [Concomitant]
  7. DEXKETOPROFEN [Concomitant]
  8. TRAMADOL HCL [Concomitant]
  9. FERROGRADUMET [Concomitant]
  10. PARACETAMOL [Concomitant]

REACTIONS (1)
  - APHASIA [None]
